FAERS Safety Report 9000867 (Version 3)
Quarter: 2013Q1

REPORT INFORMATION
  Report Type: Spontaneous
  Country: JP (occurrence: None)
  Receive Date: 20121226
  Receipt Date: 20130205
  Transmission Date: 20140127
  Serious: Yes (Other)
  Sender: FDA-Public Use
  Company Number: JP-010445

PATIENT
  Age: 85 Year
  Sex: Male
  Weight: 54.4 kg

DRUGS (12)
  1. GONAX [Suspect]
     Indication: PROSTATE CANCER
     Route: 058
     Dates: start: 201211, end: 201211
  2. SOLIFENACIN [Suspect]
     Indication: HYPERTONIC BLADDER
     Route: 048
     Dates: start: 201211
  3. NAFTOPIDIL [Suspect]
     Indication: PRODUCT USED FOR UNKNOWN INDICATION
     Route: 048
     Dates: start: 201211
  4. GLUCOBAY [Concomitant]
  5. GLIMEPIRIDE [Concomitant]
  6. DIOVAN [Concomitant]
  7. HERBESSER R [Concomitant]
  8. FLUITRAN [Concomitant]
  9. PLAVIX [Concomitant]
  10. SENNOSIDE [Concomitant]
  11. COLEPOLI-R [Concomitant]
  12. MAGNESIUM OXIDE [Concomitant]

REACTIONS (3)
  - Asthma [None]
  - Dyspnoea [None]
  - Drug eruption [None]
